FAERS Safety Report 25908464 (Version 1)
Quarter: 2025Q4

REPORT INFORMATION
  Report Type: Report from Study
  Country: CA (occurrence: CA)
  Receive Date: 20251010
  Receipt Date: 20251010
  Transmission Date: 20260118
  Serious: Yes (Other)
  Sender: AMGEN
  Company Number: CA-BEH-2024189141

PATIENT
  Age: 73 Year
  Sex: Female

DRUGS (4)
  1. AVACOPAN [Suspect]
     Active Substance: AVACOPAN
     Indication: Anti-neutrophil cytoplasmic antibody positive vasculitis
     Dosage: 30 MG, BID (THREE CAPSULES TWICE A DAY WITH FOOD)
     Route: 048
     Dates: start: 20241017
  2. LASIX [Suspect]
     Active Substance: FUROSEMIDE
     Indication: Product used for unknown indication
     Dosage: UNK
     Route: 065
  3. RITUXIMAB-ABBS [Concomitant]
     Active Substance: RITUXIMAB-ABBS
     Dosage: UNK
     Route: 042
  4. EMPAGLIFLOZIN [Concomitant]
     Active Substance: EMPAGLIFLOZIN
     Dosage: UNK BID
     Route: 048

REACTIONS (13)
  - Throat tightness [Unknown]
  - Peripheral swelling [Recovering/Resolving]
  - Hypoaesthesia [Recovering/Resolving]
  - Dry mouth [Unknown]
  - Dry throat [Unknown]
  - Cough [Unknown]
  - Headache [Unknown]
  - Nasal congestion [Unknown]
  - Hypoaesthesia [Unknown]
  - Musculoskeletal stiffness [Unknown]
  - Paraesthesia [Recovered/Resolved]
  - Oropharyngeal pain [Unknown]
  - Influenza like illness [Unknown]

NARRATIVE: CASE EVENT DATE: 20241201
